FAERS Safety Report 7909245 (Version 2)
Quarter: 2013Q1

REPORT INFORMATION
  Report Type: Spontaneous
  Country: US (occurrence: US)
  Receive Date: 20110421
  Receipt Date: 20130104
  Transmission Date: 20140127
  Serious: No
  Sender: FDA-Public Use
  Company Number: US-ASTRAZENECA-2011SE01658

PATIENT
  Age: 65 Year
  Sex: Female

DRUGS (1)
  1. TOPROL XL [Suspect]
     Route: 048

REACTIONS (3)
  - Nasopharyngitis [Unknown]
  - Feeling abnormal [Unknown]
  - Feeling jittery [Unknown]
